FAERS Safety Report 4746458-X (Version None)
Quarter: 2005Q3

REPORT INFORMATION
  Report Type: 
  Country: None (occurrence: None)
  Receive Date: 20050817
  Receipt Date: 20050804
  Transmission Date: 20060218
  Serious: Yes (Hospitalization)
  Sender: FDA-Public Use
  Company Number: US-AMGEN-US144070

PATIENT
  Sex: Female
  Weight: 67.6 kg

DRUGS (8)
  1. NEULASTA [Suspect]
     Indication: CHEMOTHERAPY
     Dates: start: 20050519
  2. NEUPOGEN [Concomitant]
     Indication: CHEMOTHERAPY
     Dates: start: 20050630, end: 20050706
  3. ARANESP [Concomitant]
     Indication: ANAEMIA OF MALIGNANT DISEASE
     Dates: start: 20050518, end: 20050630
  4. EPIRUBICIN [Concomitant]
     Dates: start: 20050518, end: 20050630
  5. CYTOXAN [Concomitant]
     Dates: start: 20050518, end: 20050630
  6. DECADRON [Concomitant]
     Dates: start: 20050518, end: 20050630
  7. ALOXI [Concomitant]
     Dates: start: 20050518, end: 20050630
  8. TAXOTERE [Concomitant]

REACTIONS (2)
  - CHEST PAIN [None]
  - HEADACHE [None]
